FAERS Safety Report 9962172 (Version 1)
Quarter: 2014Q1

REPORT INFORMATION
  Report Type: Report from Study
  Country: US (occurrence: US)
  Receive Date: 20140305
  Receipt Date: 20140305
  Transmission Date: 20141002
  Serious: No
  Sender: FDA-Public Use
  Company Number: US-ABBVIE-13P-163-1116143-00

PATIENT
  Age: 54 Year
  Sex: Male
  Weight: 94.43 kg

DRUGS (1)
  1. HUMIRA [Suspect]
     Indication: ANKYLOSING SPONDYLITIS
     Route: 058
     Dates: start: 2008, end: 20130604

REACTIONS (3)
  - Arthralgia [Unknown]
  - Drug dose omission [Unknown]
  - Arthritis [Unknown]
